FAERS Safety Report 8072766-3 (Version None)
Quarter: 2012Q1

REPORT INFORMATION
  Report Type: 
  Country: None (occurrence: None)
  Receive Date: 20120126
  Receipt Date: 20120117
  Transmission Date: 20120608
  Serious: Yes (Other)
  Sender: FDA-Public Use
  Company Number: FR-ALLERGAN-1108696US

PATIENT
  Age: 43 Year
  Sex: Female
  Weight: 52.5 kg

DRUGS (3)
  1. BIMATOPROST AND TIMOLOL MALEATE [Suspect]
     Indication: INTRAOCULAR PRESSURE INCREASED
     Dosage: 2 GTT, QAM
     Route: 047
     Dates: end: 20110601
  2. TIMOLOL MALEATE [Concomitant]
     Dosage: UNK
  3. COMBIGAN [Suspect]
     Indication: INTRAOCULAR PRESSURE INCREASED
     Dosage: 2 GTT, QAM
     Route: 047
     Dates: end: 20110601

REACTIONS (2)
  - PREMATURE RUPTURE OF MEMBRANES [None]
  - PREGNANCY [None]
